FAERS Safety Report 8810281 (Version 5)
Quarter: 2014Q3

REPORT INFORMATION
  Report Type: Spontaneous
  Country: US (occurrence: US)
  Receive Date: 20120926
  Receipt Date: 20140824
  Transmission Date: 20150326
  Serious: Yes (Death, Hospitalization, Other)
  Sender: FDA-Public Use
  Company Number: US-009507513-1209USA009617

PATIENT
  Sex: Female
  Weight: 136.5 kg

DRUGS (1)
  1. NUVARING [Suspect]
     Active Substance: ETHINYL ESTRADIOL\ETONOGESTREL
     Indication: CONTRACEPTION
     Dosage: UNK
     Route: 067
     Dates: start: 20071029, end: 20100924

REACTIONS (9)
  - Portal vein thrombosis [Unknown]
  - Gallbladder disorder [Unknown]
  - Pulmonary embolism [Fatal]
  - Conjunctivitis bacterial [Unknown]
  - Eczema [Not Recovered/Not Resolved]
  - Gastrooesophageal reflux disease [Unknown]
  - Intestinal obstruction [Unknown]
  - Menopausal symptoms [Unknown]
  - Deep vein thrombosis [Unknown]

NARRATIVE: CASE EVENT DATE: 20100714
